FAERS Safety Report 8880383 (Version 14)
Quarter: 2013Q2

REPORT INFORMATION
  Report Type: Report from Study
  Country: CA (occurrence: CA)
  Receive Date: 20121101
  Receipt Date: 20130502
  Transmission Date: 20140414
  Serious: Yes (Death, Hospitalization, Other)
  Sender: FDA-Public Use
  Company Number: PHHY2010CA78943

PATIENT
  Age: 82 Year
  Sex: Male

DRUGS (14)
  1. SANDOSTATIN LAR [Suspect]
     Indication: ACROMEGALY
     Dosage: 20 MG, EVERY 4 WEEKS
     Route: 030
     Dates: start: 20101115
  2. SANDOSTATIN LAR [Suspect]
     Dosage: 30 MG, QMO
     Route: 030
  3. SANDOSTATIN LAR [Suspect]
     Dosage: 30 MG, EVERY 3 WEEKS
     Route: 030
  4. SANDOSTATIN LAR [Suspect]
     Dosage: 30 MG, EVERY 2 WEEKS
     Route: 030
  5. SYMBICORT [Concomitant]
     Dosage: UNK UKN, UNK
  6. SYMBICORT [Concomitant]
     Dosage: UNK UKN, TID
  7. PREDNISONE [Concomitant]
     Dosage: 10 MG, UNK
  8. PREDNISONE [Concomitant]
     Dosage: 20 MG, UNK
     Dates: end: 20120413
  9. PREDNISONE [Concomitant]
     Dosage: 10 MG, UNK
     Dates: start: 20120413
  10. PREDNISONE [Concomitant]
     Dosage: 50 MG, QD
     Route: 048
  11. PREDNISONE [Concomitant]
     Dosage: 25 MG, UNK
  12. TECTA [Concomitant]
  13. CELLCEPT [Concomitant]
     Dosage: UNK UKN, UNK
  14. CELLCEPT [Concomitant]
     Dosage: 500 MG, UKN

REACTIONS (32)
  - Death [Fatal]
  - Muscular weakness [Unknown]
  - Movement disorder [Unknown]
  - Pneumonia [Unknown]
  - Asthenia [Unknown]
  - Dyspnoea [Unknown]
  - Confusional state [Unknown]
  - Atrial fibrillation [Unknown]
  - Goitre [Unknown]
  - Palatal oedema [Unknown]
  - Swollen tongue [Unknown]
  - Fall [Unknown]
  - Injury [Unknown]
  - Excoriation [Unknown]
  - Myasthenia gravis [Unknown]
  - Asthenopia [Unknown]
  - Anaemia [Unknown]
  - Contusion [Unknown]
  - Lethargy [Not Recovered/Not Resolved]
  - Blood pressure systolic increased [Unknown]
  - Oedema peripheral [Unknown]
  - Heart rate irregular [Unknown]
  - Cough [Not Recovered/Not Resolved]
  - Weight decreased [Unknown]
  - Eye swelling [Unknown]
  - Feeling abnormal [Unknown]
  - Hypotension [Unknown]
  - Fatigue [Not Recovered/Not Resolved]
  - Decreased appetite [Unknown]
  - Diarrhoea [Unknown]
  - Abdominal pain upper [Unknown]
  - Headache [Unknown]
